FAERS Safety Report 9342046 (Version 1)
Quarter: 2013Q2

REPORT INFORMATION
  Report Type: Spontaneous
  Country: AU (occurrence: None)
  Receive Date: 20130606
  Receipt Date: 20130606
  Transmission Date: 20140414
  Serious: Yes (Life-Threatening)
  Sender: FDA-Public Use
  Company Number: 2013AP005538

PATIENT
  Age: 51 Year
  Sex: Female

DRUGS (3)
  1. ESCITALOPRAM (ESCITALOPRAM) [Suspect]
     Indication: DEPRESSION
  2. FLUOXETINE HYDROCHLORIDE (FLUOXETINE HYDROCHLORIDE) [Suspect]
  3. ESOMEPRAZOLE MAGNESIUM (ESOMEPRAZOLE MAGNESIUM) [Concomitant]

REACTIONS (3)
  - Suicidal ideation [None]
  - Intentional overdose [None]
  - Suicide attempt [None]
